FAERS Safety Report 7800013-3 (Version None)
Quarter: 2011Q4

REPORT INFORMATION
  Report Type: 
  Country: None (occurrence: None)
  Receive Date: 20111006
  Receipt Date: 20111003
  Transmission Date: 20120403
  Serious: Yes (Other)
  Sender: FDA-Public Use
  Company Number: US-ABBOTT-11P-163-0860626-00

PATIENT
  Sex: Female

DRUGS (3)
  1. MULTIPLE UNKNOWN MEDICATIONS [Concomitant]
     Indication: PRODUCT USED FOR UNKNOWN INDICATION
  2. METHOTREXATE [Concomitant]
     Indication: RHEUMATOID ARTHRITIS
  3. HUMIRA [Suspect]
     Indication: RHEUMATOID ARTHRITIS
     Dates: start: 20090101

REACTIONS (5)
  - UPPER RESPIRATORY TRACT INFECTION [None]
  - BACK PAIN [None]
  - SINUSITIS [None]
  - DIABETES MELLITUS [None]
  - GAIT DISTURBANCE [None]
